FAERS Safety Report 9163717 (Version 1)
Quarter: 2013Q1

REPORT INFORMATION
  Report Type: Spontaneous
  Country: US (occurrence: US)
  Receive Date: 20130314
  Receipt Date: 20130314
  Transmission Date: 20140127
  Serious: Yes (Death, Other)
  Sender: FDA-Public Use
  Company Number: US-ELI_LILLY_AND_COMPANY-US201303004278

PATIENT
  Age: 89 Year
  Sex: Male

DRUGS (3)
  1. EFFIENT [Suspect]
     Indication: PERCUTANEOUS CORONARY INTERVENTION
     Dosage: 10 MG, UNK
  2. INTEGRELIN [Concomitant]
  3. ASPIRIN [Concomitant]

REACTIONS (2)
  - Cardiogenic shock [Fatal]
  - Gastrointestinal haemorrhage [Not Recovered/Not Resolved]
